FAERS Safety Report 12878538 (Version 8)
Quarter: 2021Q3

REPORT INFORMATION
  Report Type: Report from Study
  Country: JP (occurrence: JP)
  Receive Date: 20161024
  Receipt Date: 20210812
  Transmission Date: 20211014
  Serious: Yes (Hospitalization, Other)
  Sender: FDA-Public Use
  Company Number: JP-BRISTOL-MYERS SQUIBB COMPANY-BMS-2016-029278

PATIENT
  Age: 79 Year
  Sex: Male
  Weight: 50 kg

DRUGS (4)
  1. PROTON PUMP INHIBITORS [Concomitant]
     Active Substance: UNSPECIFIED INGREDIENT
     Indication: PRODUCT USED FOR UNKNOWN INDICATION
     Route: 065
  2. DIPEPTIDYL PEPTIDASE 4 (DPP?4) INHIBITORS [Concomitant]
     Active Substance: UNSPECIFIED INGREDIENT
     Indication: PRODUCT USED FOR UNKNOWN INDICATION
     Route: 065
  3. NIVOLUMAB [Suspect]
     Active Substance: NIVOLUMAB
     Indication: MALIGNANT MELANOMA
     Dosage: 2 MILLIGRAM/KILOGRAM, Q3WK
     Route: 041
     Dates: start: 20151030, end: 20160307
  4. EDOXABAN [Concomitant]
     Active Substance: EDOXABAN TOSYLATE
     Indication: PRODUCT USED FOR UNKNOWN INDICATION
     Route: 065

REACTIONS (4)
  - Intentional product use issue [Unknown]
  - IgA nephropathy [Recovering/Resolving]
  - Tubulointerstitial nephritis [Recovering/Resolving]
  - Eczema herpeticum [Not Recovered/Not Resolved]

NARRATIVE: CASE EVENT DATE: 20151120
